FAERS Safety Report 4379524-1 (Version None)
Quarter: 2004Q2

REPORT INFORMATION
  Report Type: 
  Country: None (occurrence: None)
  Receive Date: 20040614
  Receipt Date: 20040603
  Transmission Date: 20050107
  Serious: Yes (Other)
  Sender: FDA-Public Use
  Company Number: 2004-06-0316

PATIENT
  Sex: Male

DRUGS (2)
  1. NASONEX [Suspect]
     Dosage: ONCE DAILY NASAL SPRAY
     Dates: start: 20040501
  2. ADVAIR (SALMETEROL/FLUTICASONE) [Concomitant]

REACTIONS (1)
  - ANOSMIA [None]
